FAERS Safety Report 18067796 (Version 5)
Quarter: 2022Q2

REPORT INFORMATION
  Report Type: Spontaneous
  Country: CH (occurrence: CH)
  Receive Date: 20200724
  Receipt Date: 20220113
  Transmission Date: 20220721
  Serious: Yes (Life-Threatening, Hospitalization, Other)
  Sender: FDA-Public Use
  Company Number: CH-VERTEX PHARMACEUTICALS-2020-014893

PATIENT
  Age: 9 Year
  Sex: Male
  Weight: 26 kg

DRUGS (13)
  1. ORKAMBI [Suspect]
     Active Substance: IVACAFTOR\LUMACAFTOR
     Indication: Cystic fibrosis
     Dosage: 2 DOSAGE FORM, BID
     Route: 048
     Dates: start: 20200521, end: 20200530
  2. ORKAMBI [Suspect]
     Active Substance: IVACAFTOR\LUMACAFTOR
     Dosage: 2 DOSAGE FORM, BID
     Route: 048
     Dates: start: 20200710, end: 20200710
  3. ALBUTEROL [Concomitant]
     Active Substance: ALBUTEROL
     Dosage: LONG TERM THERAPY
  4. MUCOCLEAR [Concomitant]
     Dosage: LONG TERM THERAPY
  5. PULMOZYME [Concomitant]
     Active Substance: DORNASE ALFA
     Dosage: LONG TERM THERAPY
  6. COLIFIN PARI [Concomitant]
     Dosage: LONG TERM THERAPY
  7. CREON [Concomitant]
     Active Substance: PANCRELIPASE AMYLASE\PANCRELIPASE LIPASE\PANCRELIPASE PROTEASE
     Dosage: LONG TERM THERAPY
     Route: 048
  8. MALTOFER [Concomitant]
     Dosage: LONG TERM THERAPY
     Route: 048
  9. IBUPROFEN [Concomitant]
     Active Substance: IBUPROFEN
     Dosage: LONG TERM THERAPY
     Route: 048
  10. FLUCLOXACILLIN [Concomitant]
     Active Substance: FLUCLOXACILLIN
     Indication: Infective pulmonary exacerbation of cystic fibrosis
     Route: 048
  11. GENTAMICIN SULFATE [Concomitant]
     Active Substance: GENTAMICIN SULFATE
     Indication: Infective pulmonary exacerbation of cystic fibrosis
     Route: 042
  12. PIPERACILLIN SODIUM\TAZOBACTAM SODIUM [Concomitant]
     Active Substance: PIPERACILLIN SODIUM\TAZOBACTAM SODIUM
     Indication: Infective pulmonary exacerbation of cystic fibrosis
     Route: 042
  13. AMOXICILLIN\CLAVULANATE POTASSIUM [Concomitant]
     Active Substance: AMOXICILLIN\CLAVULANATE POTASSIUM
     Indication: Infective pulmonary exacerbation of cystic fibrosis
     Route: 048

REACTIONS (1)
  - Drug reaction with eosinophilia and systemic symptoms [Recovered/Resolved]

NARRATIVE: CASE EVENT DATE: 20200524
